FAERS Safety Report 16455100 (Version 1)
Quarter: 2019Q2

REPORT INFORMATION
  Report Type: Spontaneous
  Country: US (occurrence: US)
  Receive Date: 20190620
  Receipt Date: 20190620
  Transmission Date: 20190711
  Serious: Yes (Death)
  Sender: FDA-Public Use
  Company Number: US-VIFOR (INTERNATIONAL) INC.-VIT-2019-06069

PATIENT
  Age: 67 Year
  Sex: Male

DRUGS (1)
  1. VELPHORO [Suspect]
     Active Substance: FERRIC OXYHYDROXIDE
     Indication: PRODUCT USED FOR UNKNOWN INDICATION
     Dosage: 3 TABLETS WITH MEALS
     Route: 048
     Dates: start: 20190413, end: 20190609

REACTIONS (2)
  - Diarrhoea [Fatal]
  - Gastrointestinal obstruction [Fatal]

NARRATIVE: CASE EVENT DATE: 2019
